FAERS Safety Report 17804758 (Version 2)
Quarter: 2020Q2

REPORT INFORMATION
  Report Type: Spontaneous
  Country: US (occurrence: US)
  Receive Date: 20200520
  Receipt Date: 20200607
  Transmission Date: 20200714
  Serious: Yes (Other)
  Sender: FDA-Public Use
  Company Number: US-AUROBINDO-AUR-APL-2020-024697

PATIENT
  Sex: Male

DRUGS (1)
  1. HYDROCODONE BITARTRATE AND ACETAMINOPHEN 10/325MG [Suspect]
     Active Substance: ACETAMINOPHEN\HYDROCODONE BITARTRATE
     Indication: SPINAL CORD INJURY
     Dosage: UNK
     Route: 065
     Dates: start: 202004

REACTIONS (5)
  - Dyspepsia [Recovering/Resolving]
  - Respiratory distress [Unknown]
  - Headache [Recovered/Resolved]
  - Blood pressure increased [Unknown]
  - Weight increased [Unknown]
